FAERS Safety Report 11855236 (Version 1)
Quarter: 2015Q4

REPORT INFORMATION
  Report Type: Spontaneous
  Country: FR (occurrence: FR)
  Receive Date: 20151221
  Receipt Date: 20151221
  Transmission Date: 20160305
  Serious: Yes (Other)
  Sender: FDA-Public Use
  Company Number: FR-ACTAVIS-2015-15999

PATIENT
  Age: 24 Year
  Sex: Female

DRUGS (2)
  1. CLONAZEPAM (UNKNOWN) [Suspect]
     Active Substance: CLONAZEPAM
     Indication: JUVENILE MYOCLONIC EPILEPSY
     Dosage: 14 MG, DAILY
     Route: 065
  2. CLONAZEPAM (UNKNOWN) [Suspect]
     Active Substance: CLONAZEPAM
     Indication: BIPOLAR DISORDER

REACTIONS (5)
  - Myoclonus [Recovered/Resolved]
  - Status epilepticus [Recovered/Resolved]
  - Confusional state [Recovered/Resolved]
  - Drug withdrawal syndrome [Recovered/Resolved]
  - Petit mal epilepsy [Recovered/Resolved]
